FAERS Safety Report 24862294 (Version 3)
Quarter: 2025Q1

REPORT INFORMATION
  Report Type: Report from Study
  Country: US (occurrence: US)
  Receive Date: 20250120
  Receipt Date: 20250325
  Transmission Date: 20250409
  Serious: Yes (Other)
  Sender: NOVARTIS
  Company Number: US-002147023-NVSC2024US102615

PATIENT
  Sex: Female

DRUGS (1)
  1. KESIMPTA [Suspect]
     Active Substance: OFATUMUMAB
     Indication: Multiple sclerosis
     Dosage: 20 MG, QMO
     Route: 058
     Dates: start: 20230127

REACTIONS (19)
  - Multiple sclerosis relapse [Recovered/Resolved]
  - Ophthalmoplegia [Unknown]
  - Intervertebral disc degeneration [Unknown]
  - Gait disturbance [Unknown]
  - Pain [Unknown]
  - Intervertebral disc protrusion [Unknown]
  - Spinal osteoarthritis [Unknown]
  - Concomitant disease aggravated [Unknown]
  - Fatigue [Unknown]
  - Vertigo [Unknown]
  - Dizziness [Unknown]
  - Fall [Unknown]
  - Balance disorder [Unknown]
  - Memory impairment [Unknown]
  - Hypoaesthesia [Unknown]
  - Migraine [Unknown]
  - Head discomfort [Unknown]
  - Feeling abnormal [Unknown]
  - Cartilage injury [Unknown]

NARRATIVE: CASE EVENT DATE: 20240101
